FAERS Safety Report 19270119 (Version 7)
Quarter: 2023Q2

REPORT INFORMATION
  Report Type: Spontaneous
  Country: US (occurrence: US)
  Receive Date: 20210518
  Receipt Date: 20230612
  Transmission Date: 20230722
  Serious: Yes (Hospitalization, Other)
  Sender: FDA-Public Use
  Company Number: US-PFIZER INC-2021513596

PATIENT
  Age: 74 Year
  Sex: Female
  Weight: 64.86 kg

DRUGS (1)
  1. XELJANZ XR [Suspect]
     Active Substance: TOFACITINIB CITRATE
     Indication: Rheumatoid arthritis
     Dosage: 11 MG, 1X/DAY
     Route: 048
     Dates: start: 2021, end: 202104

REACTIONS (8)
  - Hip fracture [Recovering/Resolving]
  - Fall [Recovered/Resolved with Sequelae]
  - Deafness [Unknown]
  - Confusional state [Unknown]
  - Loss of personal independence in daily activities [Unknown]
  - Nervousness [Unknown]
  - Housebound [Unknown]
  - Osteoporosis [Unknown]

NARRATIVE: CASE EVENT DATE: 20210410
